FAERS Safety Report 5707719-0 (Version None)
Quarter: 2008Q2

REPORT INFORMATION
  Report Type: 
  Country: None (occurrence: None)
  Receive Date: 20080417
  Receipt Date: 20080415
  Transmission Date: 20081010
  Serious: Yes (Life-Threatening, Hospitalization)
  Sender: FDA-Public Use
  Company Number: DE-SP-2008-01090

PATIENT
  Age: 67 Year
  Sex: Male
  Weight: 82 kg

DRUGS (1)
  1. IMMUCYST [Suspect]
     Indication: BLADDER CANCER
     Route: 043
     Dates: start: 20070626, end: 20070710

REACTIONS (6)
  - DYSPNOEA [None]
  - JOINT SWELLING [None]
  - MYALGIA [None]
  - NIGHT SWEATS [None]
  - PYREXIA [None]
  - TACHYCARDIA [None]
